FAERS Safety Report 14676935 (Version 2)
Quarter: 2018Q2

REPORT INFORMATION
  Report Type: Spontaneous
  Country: US (occurrence: US)
  Receive Date: 20180324
  Receipt Date: 20180410
  Transmission Date: 20180711
  Serious: Yes (Other)
  Sender: FDA-Public Use
  Company Number: US-TAKEDA-2018TUS007041

PATIENT
  Sex: Female
  Weight: 55.33 kg

DRUGS (1)
  1. ENTYVIO [Suspect]
     Active Substance: VEDOLIZUMAB
     Indication: CROHN^S DISEASE
     Dosage: UNK
     Route: 042
     Dates: start: 2017

REACTIONS (3)
  - Amnesia [Not Recovered/Not Resolved]
  - Thinking abnormal [Unknown]
  - Crohn^s disease [Unknown]
